FAERS Safety Report 5826427-9 (Version None)
Quarter: 2008Q3

REPORT INFORMATION
  Report Type: 
  Country: None (occurrence: None)
  Receive Date: 20080724
  Receipt Date: 20080714
  Transmission Date: 20090109
  Serious: Yes (Other)
  Sender: FDA-Public Use
  Company Number: 8034819

PATIENT
  Sex: Female
  Weight: 85 kg

DRUGS (2)
  1. LEVETIRACETAM [Suspect]
     Indication: PROPHYLAXIS
     Dosage: 1000 MG /D PO
     Route: 048
     Dates: start: 20070701, end: 20080501
  2. CORTIZONE [Concomitant]

REACTIONS (1)
  - LEUKOPENIA [None]
